FAERS Safety Report 6390362-0 (Version None)
Quarter: 2009Q4

REPORT INFORMATION
  Report Type: 
  Country: None (occurrence: None)
  Receive Date: 20091006
  Receipt Date: 20091001
  Transmission Date: 20100525
  Serious: Yes (Death, Hospitalization)
  Sender: FDA-Public Use
  Company Number: SE-ROCHE-659970

PATIENT

DRUGS (4)
  1. CAPECITABINE [Suspect]
     Dosage: LAST DOSE PRIOR SAE: 04 MAY 2009 ON DAY 1-14 EVERY 3 WEEKS POSTPONED
     Route: 048
     Dates: start: 20090427
  2. CAPECITABINE [Suspect]
     Dosage: LAST DOSE PRIOR SAE: 07 JUN 2009
     Route: 048
  3. TAXOTERE [Suspect]
     Dosage: INFUSION ON DAY 1,8,15 OF CYCLE OR ON DAY 1,8 IN ALTERNATIVE 3 WEEK SCHEDULE
     Route: 042
  4. TAXOTERE [Suspect]
     Route: 042

REACTIONS (2)
  - ABDOMINAL PAIN [None]
  - FEBRILE NEUTROPENIA [None]
